FAERS Safety Report 7517514-8 (Version None)
Quarter: 2011Q2

REPORT INFORMATION
  Report Type: 
  Country: None (occurrence: None)
  Receive Date: 20110601
  Receipt Date: 20110517
  Transmission Date: 20111010
  Serious: Yes (Other)
  Sender: FDA-Public Use
  Company Number: GB-WATSON-2011-06800

PATIENT
  Age: 49 Year
  Sex: Female

DRUGS (6)
  1. LAMOTRIGINE [Suspect]
     Indication: CONVULSION
     Dosage: 50MG UNKNOWN INTERVAL
     Route: 065
  2. AMISULPRIDE (UNKNOWN) [Suspect]
     Indication: SCHIZOPHRENIA
     Dosage: 200MG UNKNOWN INTERVAL
     Route: 048
  3. TEMAZEPAM [Concomitant]
     Indication: INSOMNIA
     Dosage: 10MG UNKNOWN INTERVAL
     Route: 048
  4. CLOZARIL [Suspect]
     Indication: SCHIZOPHRENIA
     Dosage: 600MG UNKNOWN INTERVAL
     Route: 048
  5. RAMIPRIL [Concomitant]
     Indication: HYPERTENSION
     Dosage: 10MG UNKNOWN INTERVAL
     Route: 048
  6. PAROXETINE HCL [Concomitant]
     Indication: DEPRESSION
     Dosage: 30MG UNKNOWN INTERVAL
     Route: 048

REACTIONS (8)
  - ABSCESS [None]
  - MENTAL IMPAIRMENT [None]
  - PLATELET COUNT DECREASED [None]
  - BREAST ABSCESS [None]
  - METASTASES TO SPINE [None]
  - WHITE BLOOD CELL COUNT INCREASED [None]
  - BREAST CANCER [None]
  - NEUTROPHIL COUNT INCREASED [None]
